FAERS Safety Report 6458777-X (Version None)
Quarter: 2009Q4

REPORT INFORMATION
  Report Type: 
  Country: None (occurrence: None)
  Receive Date: 20091127
  Receipt Date: 20091120
  Transmission Date: 20100525
  Serious: Yes (Death)
  Sender: FDA-Public Use
  Company Number: FR-ROCHE-670158

PATIENT
  Sex: Male

DRUGS (3)
  1. TAMIFLU [Suspect]
     Route: 048
     Dates: start: 20091113, end: 20091115
  2. SERESTA [Concomitant]
     Dosage: DRUG: SERESTA 50
  3. NOCTAMIDE [Concomitant]

REACTIONS (1)
  - DEATH [None]
